FAERS Safety Report 7189444-5 (Version None)
Quarter: 2010Q4

REPORT INFORMATION
  Report Type: 
  Country: None (occurrence: None)
  Receive Date: 20101223
  Receipt Date: 20101221
  Transmission Date: 20110411
  Serious: Yes (Hospitalization, Other)
  Sender: FDA-Public Use
  Company Number: DE-ABBOTT-10P-062-0664301-00

PATIENT
  Sex: Female
  Weight: 107 kg

DRUGS (3)
  1. HUMIRA [Suspect]
     Indication: PSORIATIC ARTHROPATHY
     Route: 058
     Dates: start: 20100401
  2. RANTUDIL [Concomitant]
     Indication: PSORIATIC ARTHROPATHY
     Route: 048
     Dates: start: 20100101
  3. CORTISONE [Concomitant]
     Indication: PSORIASIS
     Route: 061

REACTIONS (4)
  - ANKLE FRACTURE [None]
  - ARTHRITIS BACTERIAL [None]
  - INJURY [None]
  - RENAL FAILURE ACUTE [None]
